FAERS Safety Report 15715469 (Version 5)
Quarter: 2020Q3

REPORT INFORMATION
  Report Type: Spontaneous
  Country: US (occurrence: US)
  Receive Date: 20181212
  Receipt Date: 20200707
  Transmission Date: 20201102
  Serious: No
  Sender: FDA-Public Use
  Company Number: US-ACTELION-A-NJ2017-163998

PATIENT
  Age: 67 Year
  Sex: Female
  Weight: 55.33 kg

DRUGS (5)
  1. TADALAFIL. [Concomitant]
     Active Substance: TADALAFIL
  2. ADCIRCA [Concomitant]
     Active Substance: TADALAFIL
  3. AMOXICILLIN. [Concomitant]
     Active Substance: AMOXICILLIN
     Indication: PROPHYLAXIS
     Dosage: 4500 MG, UNK
  4. LETAIRIS [Concomitant]
     Active Substance: AMBRISENTAN
  5. OPSUMIT [Suspect]
     Active Substance: MACITENTAN
     Indication: PULMONARY HYPERTENSION
     Dosage: 10 MG, QD
     Route: 048
     Dates: start: 20171120

REACTIONS (10)
  - Dyspnoea exertional [Unknown]
  - Pruritus [Unknown]
  - Nasal congestion [Unknown]
  - Dental operation [Unknown]
  - Dyspnoea [Unknown]
  - Dizziness postural [Unknown]
  - Nocturnal dyspnoea [Recovering/Resolving]
  - Laryngitis [Unknown]
  - Erythema [Unknown]
  - Feeling abnormal [Unknown]

NARRATIVE: CASE EVENT DATE: 20171120
